FAERS Safety Report 18450084 (Version 1)
Quarter: 2020Q4

REPORT INFORMATION
  Report Type: Report from Study
  Country: CA (occurrence: CA)
  Receive Date: 20201030
  Receipt Date: 20201030
  Transmission Date: 20210114
  Serious: Yes (Other)
  Sender: FDA-Public Use
  Company Number: CA-JNJFOC-20201040948

PATIENT
  Age: 55 Year
  Sex: Female
  Weight: 65.3 kg

DRUGS (1)
  1. REMICADE [Suspect]
     Active Substance: INFLIXIMAB
     Indication: RHEUMATOID ARTHRITIS
     Dosage: ON 21-OCT-2020, PATIENT RECEIVED INFUSION
     Route: 042
     Dates: start: 20100122

REACTIONS (1)
  - Systemic lupus erythematosus [Unknown]
